FAERS Safety Report 8406930-8 (Version None)
Quarter: 2012Q2

REPORT INFORMATION
  Report Type: 
  Country: None (occurrence: None)
  Receive Date: 20120604
  Receipt Date: 20120529
  Transmission Date: 20120825
  Serious: Yes (Hospitalization)
  Sender: FDA-Public Use
  Company Number: FR-PFIZER INC-2012129613

PATIENT
  Age: 75 Year
  Sex: Male

DRUGS (7)
  1. CLONAZEPAM [Concomitant]
     Dosage: 5 GTT, 1X/DAY
  2. SUTENT [Suspect]
     Dosage: 50 MG, 1X/DAY
     Dates: start: 20090728, end: 20090824
  3. NEBIVOLOL HCL [Concomitant]
     Dosage: 5 MG, 1X/DAY
  4. SUTENT [Suspect]
     Indication: RENAL CANCER METASTATIC
     Dosage: 50 MG, 1X/DAY
     Dates: start: 20090414
  5. ATACAND [Concomitant]
     Dosage: 1 DF (16/12.5) , 1X/DAY
  6. AMLODIPINE BESYLATE [Concomitant]
     Dosage: 10 UNK, 1X/DAY
  7. CRESTOR [Concomitant]
     Dosage: 5 MG, 1X/DAY

REACTIONS (2)
  - DIARRHOEA [None]
  - PANCYTOPENIA [None]
